FAERS Safety Report 9460875 (Version 1)
Quarter: 2013Q3

REPORT INFORMATION
  Report Type: Spontaneous
  Country: US (occurrence: US)
  Receive Date: 20130816
  Receipt Date: 20130816
  Transmission Date: 20140515
  Serious: Yes (Other)
  Sender: FDA-Public Use
  Company Number: US-AMGEN-USASP2013056621

PATIENT
  Age: 61 Year
  Sex: Female

DRUGS (1)
  1. ENBREL [Suspect]
     Indication: RHEUMATOID ARTHRITIS
     Dosage: 50 MG, QWK
     Route: 065
     Dates: start: 20110523

REACTIONS (5)
  - Meniscus injury [Recovered/Resolved]
  - Gait disturbance [Unknown]
  - Chondrolysis [Recovered/Resolved]
  - Chondropathy [Recovered/Resolved]
  - Arthralgia [Unknown]
